FAERS Safety Report 8836623 (Version 1)
Quarter: 2012Q4

REPORT INFORMATION
  Report Type: Spontaneous
  Country: BR (occurrence: None)
  Receive Date: 20121009
  Receipt Date: 20121009
  Transmission Date: 20130627
  Serious: Yes (Other)
  Sender: FDA-Public Use
  Company Number: BR-MACLEODS PHARMA-000005

PATIENT
  Age: 63 Year
  Sex: Female

DRUGS (1)
  1. LEVOFLOXACIN [Suspect]
     Indication: LOWER RESPIRATORY TRACT INFECTION
     Dosage: 1500.00-MG2.00 times Per-1.0Days   /Oral
     Route: 048

REACTIONS (4)
  - Myalgia [None]
  - Musculoskeletal pain [None]
  - Rotator cuff syndrome [None]
  - Blood creatine phosphokinase increased [None]
